FAERS Safety Report 4531540-2 (Version None)
Quarter: 2004Q4

REPORT INFORMATION
  Report Type: 
  Country: None (occurrence: None)
  Receive Date: 20041220
  Receipt Date: 20041215
  Transmission Date: 20050328
  Serious: Yes (Hospitalization)
  Sender: FDA-Public Use
  Company Number: US-BRISTOL-MYERS SQUIBB COMPANY-12797171

PATIENT
  Age: 78 Year
  Sex: Male

DRUGS (6)
  1. COUMADIN [Suspect]
     Indication: HEART VALVE REPLACEMENT
     Route: 048
     Dates: start: 20040701, end: 20040101
  2. CLONIDINE [Concomitant]
  3. RENAGEL [Concomitant]
  4. TOPROL-XL [Concomitant]
  5. ZOCOR [Concomitant]
  6. VANCOMYCIN [Concomitant]

REACTIONS (1)
  - CALCIPHYLAXIS [None]
